FAERS Safety Report 5187142-0 (Version None)
Quarter: 2006Q4

REPORT INFORMATION
  Report Type: 
  Country: None (occurrence: None)
  Receive Date: 20061220
  Receipt Date: 20060926
  Transmission Date: 20070319
  Serious: No
  Sender: FDA-Public Use
  Company Number: US-AMGEN-US194901

PATIENT
  Sex: Female

DRUGS (3)
  1. ENBREL [Suspect]
     Indication: SYSTEMIC LUPUS ERYTHEMATOSUS
     Route: 058
     Dates: start: 20060905
  2. CELLCEPT [Concomitant]
     Route: 065
     Dates: start: 20060201
  3. PLAQUENIL [Concomitant]
     Route: 065
     Dates: start: 20020101

REACTIONS (2)
  - RASH PAPULAR [None]
  - SECRETION DISCHARGE [None]
